FAERS Safety Report 7061285-9 (Version None)
Quarter: 2010Q4

REPORT INFORMATION
  Report Type: 
  Country: None (occurrence: None)
  Receive Date: 20101026
  Receipt Date: 20101022
  Transmission Date: 20110411
  Serious: No
  Sender: FDA-Public Use
  Company Number: US-PFIZER INC-2010121359

PATIENT
  Sex: Male
  Weight: 72.562 kg

DRUGS (5)
  1. NORVASC [Suspect]
     Indication: BLOOD PRESSURE ABNORMAL
     Dosage: 10 MG, 1X/DAY
     Route: 048
     Dates: start: 20100401
  2. MULTI-VITAMINS [Suspect]
     Dosage: UNK
     Dates: start: 20100401
  3. PROZAC [Suspect]
     Indication: DEPRESSION
     Dosage: 20 MG, 1X/DAY
     Route: 048
     Dates: start: 20100401
  4. ANTABUSE [Suspect]
     Indication: ALCOHOLISM
     Dosage: 250 MG, 1X/DAY
     Route: 048
     Dates: start: 20100401
  5. AMBIEN [Suspect]
     Indication: INSOMNIA
     Dosage: 5 MG, AS NEEDED
     Route: 048
     Dates: start: 20100401

REACTIONS (1)
  - BLOOD CREATININE DECREASED [None]
